FAERS Safety Report 6488490-4 (Version None)
Quarter: 2009Q4

REPORT INFORMATION
  Report Type: 
  Country: None (occurrence: None)
  Receive Date: 20091210
  Receipt Date: 20090930
  Transmission Date: 20100525
  Serious: No
  Sender: FDA-Public Use
  Company Number: US-AMGEN-KDL362618

PATIENT
  Sex: Male
  Weight: 88.1 kg

DRUGS (2)
  1. ENBREL [Suspect]
     Indication: RHEUMATOID ARTHRITIS
     Route: 058
     Dates: end: 20090729
  2. MEDROL [Concomitant]

REACTIONS (3)
  - MOBILITY DECREASED [None]
  - RHEUMATOID ARTHRITIS [None]
  - TUBERCULIN TEST POSITIVE [None]
